FAERS Safety Report 18705959 (Version 1)
Quarter: 2021Q1

REPORT INFORMATION
  Report Type: Spontaneous
  Country: US (occurrence: US)
  Receive Date: 20210105
  Receipt Date: 20210105
  Transmission Date: 20210419
  Serious: Yes (Other)
  Sender: FDA-Public Use
  Company Number: None

PATIENT
  Sex: Female

DRUGS (1)
  1. ACYCLOVIR SUSPENSION 5% [Suspect]
     Active Substance: ACYCLOVIR

REACTIONS (1)
  - Drug ineffective [None]
